FAERS Safety Report 12873636 (Version 2)
Quarter: 2016Q4

REPORT INFORMATION
  Report Type: Spontaneous
  Country: JP (occurrence: JP)
  Receive Date: 20161021
  Receipt Date: 20161025
  Transmission Date: 20170207
  Serious: Yes (Other)
  Sender: FDA-Public Use
  Company Number: JP-PFIZER INC-2016447933

PATIENT
  Age: 77 Year
  Sex: Male

DRUGS (6)
  1. REBAMIPIDE [Suspect]
     Active Substance: REBAMIPIDE
     Dosage: 100 MG, 1X/DAY
     Route: 048
  2. PREDONINE [Suspect]
     Active Substance: PREDNISOLONE\PREDNISOLONE ACETATE\PREDNISOLONE SODIUM SUCCINATE
     Dosage: 5 MG, 1X/DAY
     Route: 048
  3. AZULFIDINE EN-TABS [Suspect]
     Active Substance: SULFASALAZINE
     Dosage: UNK UNK, UNKNOWN FREQ.
     Route: 048
  4. CELECOX [Suspect]
     Active Substance: CELECOXIB
     Indication: RHEUMATIC DISORDER
     Dosage: 200 MG, 1X/DAY
     Route: 048
     Dates: start: 2016
  5. NEXIUM [Suspect]
     Active Substance: ESOMEPRAZOLE MAGNESIUM
     Dosage: 20 MG, 1X/DAY
     Route: 048
  6. FERROMIA [Suspect]
     Active Substance: FERROUS CITRATE
     Dosage: 100 MG, 1X/DAY
     Route: 048

REACTIONS (1)
  - Pancytopenia [Unknown]
